FAERS Safety Report 4353200-3 (Version None)
Quarter: 2004Q2

REPORT INFORMATION
  Report Type: 
  Country: None (occurrence: None)
  Receive Date: 20040503
  Receipt Date: 20040503
  Transmission Date: 20050107
  Serious: Yes (Other)
  Sender: FDA-Public Use
  Company Number: None

PATIENT
  Age: 74 Year
  Sex: Female
  Weight: 52.1637 kg

DRUGS (1)
  1. SEPTOCAINE [Suspect]
     Indication: ANAESTHESIA
     Dosage: 1.4 CC
     Dates: start: 20040422

REACTIONS (5)
  - DYSPHAGIA [None]
  - DYSPHONIA [None]
  - INJECTION SITE HAEMORRHAGE [None]
  - PURPURA [None]
  - SWELLING FACE [None]
